FAERS Safety Report 17489242 (Version 1)
Quarter: 2020Q1

REPORT INFORMATION
  Report Type: Spontaneous
  Country: US (occurrence: US)
  Receive Date: 20200221
  Receipt Date: 20200221
  Transmission Date: 20200409
  Serious: No
  Sender: FDA-Public Use
  Company Number: None

PATIENT
  Sex: Male

DRUGS (2)
  1. HUMIRA [Suspect]
     Active Substance: ADALIMUMAB
     Indication: PSORIASIS
     Dosage: ?          OTHER DOSE:40MG/0.8ML;OTHER FREQUENCY:EVERY 10 DAYS;?
     Route: 058
     Dates: start: 20160211
  2. HUMIRA [Suspect]
     Active Substance: ADALIMUMAB
     Indication: RHEUMATOID ARTHRITIS
     Dosage: ?          OTHER DOSE:40MG/0.8ML;OTHER FREQUENCY:EVERY 10 DAYS;?
     Route: 058
     Dates: start: 20160211

REACTIONS (1)
  - Therapeutic response decreased [None]
